FAERS Safety Report 10901093 (Version 1)
Quarter: 2015Q1

REPORT INFORMATION
  Report Type: Spontaneous
  Country: AU (occurrence: AU)
  Receive Date: 20150310
  Receipt Date: 20150310
  Transmission Date: 20150721
  Serious: Yes (Other)
  Sender: FDA-Public Use
  Company Number: PHHY2015AU023020

PATIENT
  Sex: Female

DRUGS (3)
  1. OCTREOTIDE [Suspect]
     Active Substance: OCTREOTIDE
     Indication: NEUROENDOCRINE TUMOUR
     Route: 065
  2. SANDOSTATIN LAR DEPOT [Suspect]
     Active Substance: OCTREOTIDE ACETATE
     Indication: NEUROENDOCRINE TUMOUR
     Dosage: 20 MG, UNK
     Route: 030
  3. SANDOSTATIN LAR DEPOT [Suspect]
     Active Substance: OCTREOTIDE ACETATE
     Dosage: 30 MG, UNK
     Route: 030

REACTIONS (10)
  - Metastases to liver [Unknown]
  - Metastases to gastrointestinal tract [Unknown]
  - Stress [Unknown]
  - Apnoea [Unknown]
  - Flushing [Unknown]
  - Metastases to breast [Unknown]
  - Pain [Unknown]
  - Malignant neoplasm progression [Unknown]
  - Metastases to pancreas [Unknown]
  - Bradycardia [Unknown]
